FAERS Safety Report 19224308 (Version 3)
Quarter: 2021Q2

REPORT INFORMATION
  Report Type: Spontaneous
  Country: CL (occurrence: CL)
  Receive Date: 20210506
  Receipt Date: 20210611
  Transmission Date: 20210717
  Serious: Yes (Hospitalization, Other)
  Sender: FDA-Public Use
  Company Number: CL-GLAXOSMITHKLINE-CL2021AMR055777

PATIENT
  Sex: Female

DRUGS (1)
  1. BENLYSTA [Suspect]
     Active Substance: BELIMUMAB
     Indication: SYSTEMIC LUPUS ERYTHEMATOSUS
     Dosage: UNK
     Dates: start: 2017

REACTIONS (6)
  - Headache [Unknown]
  - Social problem [Unknown]
  - Proteinuria [Unknown]
  - Gastrointestinal disorder [Unknown]
  - Product administration interrupted [Unknown]
  - Lupus nephritis [Unknown]
